FAERS Safety Report 6738924-2 (Version None)
Quarter: 2010Q2

REPORT INFORMATION
  Report Type: 
  Country: None (occurrence: None)
  Receive Date: 20100524
  Receipt Date: 20100518
  Transmission Date: 20101027
  Serious: Yes (Other)
  Sender: FDA-Public Use
  Company Number: FR-MERCK-1005FRA00074

PATIENT
  Age: 8 Year
  Sex: Female

DRUGS (1)
  1. SINGULAIR [Suspect]
     Indication: ASTHMA
     Route: 048
     Dates: start: 20090101, end: 20090101

REACTIONS (1)
  - ALLERGIC GRANULOMATOUS ANGIITIS [None]
